FAERS Safety Report 7306407-7 (Version None)
Quarter: 2011Q1

REPORT INFORMATION
  Report Type: 
  Country: None (occurrence: None)
  Receive Date: 20110210
  Receipt Date: 20110201
  Transmission Date: 20110831
  Serious: Yes (Hospitalization, Other)
  Sender: FDA-Public Use
  Company Number: 2008JP003568

PATIENT
  Age: 44 Year
  Sex: Female
  Weight: 53.3 kg

DRUGS (24)
  1. SLOW-K [Concomitant]
  2. RABEPRAZOLE SODIUM [Concomitant]
  3. DIAMOX [Concomitant]
  4. GASMOTIN (MOSAPRIDE CITRATE) [Concomitant]
  5. DIOVAN [Concomitant]
  6. EURODIN (DIHYDROERGOCRISTINE MESILATE) [Concomitant]
  7. DEPAS (ETIZOLAM) [Concomitant]
  8. FOSAMAC (ALENDRONATE SODIUM) [Concomitant]
  9. TACROLIMUS [Suspect]
     Indication: LUPUS NEPHRITIS
     Dosage: 3 MG/D, ORAL, 1 MG/D, ORAL, 2MG/D, ORAL, 50MG/D, ORAL, ORAL
     Route: 048
     Dates: start: 20071119, end: 20080526
  10. TACROLIMUS [Suspect]
     Indication: LUPUS NEPHRITIS
     Dosage: 3 MG/D, ORAL, 1 MG/D, ORAL, 2MG/D, ORAL, 50MG/D, ORAL, ORAL
     Route: 048
     Dates: start: 20071019, end: 20071118
  11. TACROLIMUS [Suspect]
     Indication: LUPUS NEPHRITIS
     Dosage: 3 MG/D, ORAL, 1 MG/D, ORAL, 2MG/D, ORAL, 50MG/D, ORAL, ORAL
     Route: 048
     Dates: start: 20071015, end: 20071018
  12. ONEALPHA (ALFACALCIDOL) [Concomitant]
  13. BIOFERMIN (STREPTOCOCCUS FAECALIS, BACILLUS SUBTILIS, LACTOBACILLUS AC [Concomitant]
  14. LIPITOR [Concomitant]
  15. PREDNISOLONE [Suspect]
     Indication: LUPUS NEPHRITIS
     Dosage: SEE IMAGE
     Route: 048
     Dates: start: 20080107, end: 20080203
  16. PREDNISOLONE [Suspect]
     Indication: LUPUS NEPHRITIS
     Dosage: SEE IMAGE
     Route: 048
     Dates: end: 20071019
  17. PREDNISOLONE [Suspect]
     Indication: LUPUS NEPHRITIS
     Dosage: SEE IMAGE
     Route: 048
     Dates: start: 20071020, end: 20071118
  18. PREDNISOLONE [Suspect]
     Indication: LUPUS NEPHRITIS
     Dosage: SEE IMAGE
     Route: 048
     Dates: start: 20080428
  19. PREDNISOLONE [Suspect]
     Indication: LUPUS NEPHRITIS
     Dosage: SEE IMAGE
     Route: 048
     Dates: start: 20071119, end: 20071209
  20. PREDNISOLONE [Suspect]
     Indication: LUPUS NEPHRITIS
     Dosage: SEE IMAGE
     Route: 048
     Dates: start: 20080204, end: 20080302
  21. PREDNISOLONE [Suspect]
     Indication: LUPUS NEPHRITIS
     Dosage: SEE IMAGE
     Route: 048
     Dates: start: 20071210, end: 20080106
  22. PREDNISOLONE [Suspect]
     Indication: LUPUS NEPHRITIS
     Dosage: SEE IMAGE
     Route: 048
     Dates: start: 20080303, end: 20080330
  23. PREDNISOLONE [Suspect]
     Indication: LUPUS NEPHRITIS
     Dosage: SEE IMAGE
     Route: 048
     Dates: start: 20080331, end: 20080427
  24. BACTRIM [Concomitant]

REACTIONS (4)
  - TREMOR [None]
  - OSTEONECROSIS [None]
  - OCULAR HYPERTENSION [None]
  - HYPOAESTHESIA [None]
